FAERS Safety Report 24701664 (Version 2)
Quarter: 2024Q4

REPORT INFORMATION
  Report Type: Spontaneous
  Country: US (occurrence: US)
  Receive Date: 20241205
  Receipt Date: 20241219
  Transmission Date: 20250115
  Serious: Yes (Hospitalization)
  Sender: TEVA
  Company Number: US-TEVA-VS-3270143

PATIENT
  Age: 36 Year
  Sex: Female

DRUGS (7)
  1. HYDROCORTISONE [Suspect]
     Active Substance: HYDROCORTISONE
     Indication: Gestational hyperthyroidism
     Route: 065
  2. THIAMINE [Suspect]
     Active Substance: THIAMINE
     Indication: Wernicke^s encephalopathy
     Route: 042
  3. THIAMINE [Suspect]
     Active Substance: THIAMINE
     Indication: Wernicke^s encephalopathy
     Route: 048
  4. PROPRANOLOL [Suspect]
     Active Substance: PROPRANOLOL HYDROCHLORIDE
     Indication: Gestational hyperthyroidism
     Route: 065
  5. SODIUM CHLORIDE [Suspect]
     Active Substance: SODIUM CHLORIDE
     Indication: Hyperemesis gravidarum
     Route: 042
  6. DEXTROSE [Suspect]
     Active Substance: DEXTROSE MONOHYDRATE
     Indication: Hyperemesis gravidarum
     Route: 042
  7. METHIMAZOLE [Suspect]
     Active Substance: METHIMAZOLE
     Indication: Gestational hyperthyroidism
     Route: 065

REACTIONS (4)
  - Vitamin B1 deficiency [Recovering/Resolving]
  - Maternal exposure during pregnancy [Unknown]
  - Normal newborn [Unknown]
  - Wernicke^s encephalopathy [Recovering/Resolving]
